FAERS Safety Report 16658186 (Version 2)
Quarter: 2019Q3

REPORT INFORMATION
  Report Type: Report from Study
  Country: BR (occurrence: BR)
  Receive Date: 20190801
  Receipt Date: 20190925
  Transmission Date: 20191004
  Serious: Yes (Other)
  Sender: FDA-Public Use
  Company Number: BR-GLAXOSMITHKLINE-BR2019138516

PATIENT
  Sex: Female
  Weight: 80 kg

DRUGS (12)
  1. XOLAIR [Suspect]
     Active Substance: OMALIZUMAB
     Dosage: 300 MG, QMO
     Route: 058
     Dates: start: 2017
  2. VENLAFAXINE [Concomitant]
     Active Substance: VENLAFAXINE HYDROCHLORIDE
     Indication: DEPRESSION
     Dosage: 75 MG, QD (LESS THAN A YEAR)
     Route: 048
  3. TRAMADOL. [Concomitant]
     Active Substance: TRAMADOL
     Indication: SPINAL PAIN
  4. RANITIDINE. [Concomitant]
     Active Substance: RANITIDINE
     Indication: HYPERSENSITIVITY
     Dosage: 1 DF, QID
     Route: 048
     Dates: start: 2012
  5. VENLAFAXINE [Concomitant]
     Active Substance: VENLAFAXINE HYDROCHLORIDE
     Indication: PANIC DISORDER
  6. HYDROXYZINE HCL [Concomitant]
     Active Substance: HYDROXYZINE HYDROCHLORIDE
     Indication: HYPERSENSITIVITY
     Dosage: 1 DF, QID
     Route: 048
     Dates: start: 2012
  7. VENLAFAXINE [Concomitant]
     Active Substance: VENLAFAXINE HYDROCHLORIDE
     Indication: PHOBIA
  8. LORATADINE. [Concomitant]
     Active Substance: LORATADINE
     Indication: HYPERSENSITIVITY
     Dosage: 1 DF, QID
     Route: 048
     Dates: start: 2012
  9. DOXEPIN [Concomitant]
     Active Substance: DOXEPIN
     Indication: HYPERSENSITIVITY
     Dosage: 1 DF, QID
     Route: 048
  10. TRAMADOL. [Concomitant]
     Active Substance: TRAMADOL
     Indication: BACK PAIN
     Dosage: 1 DF, QD (4 YEARS AGO)
     Route: 048
  11. DICLOFENAC [Suspect]
     Active Substance: DICLOFENAC
     Indication: PRODUCT USED FOR UNKNOWN INDICATION
     Dosage: UNK
     Route: 065
  12. XOLAIR [Suspect]
     Active Substance: OMALIZUMAB
     Indication: URTICARIA
     Dosage: UNK
     Route: 065
     Dates: start: 20170927

REACTIONS (9)
  - Blister [Not Recovered/Not Resolved]
  - Pruritus [Not Recovered/Not Resolved]
  - Hypersensitivity [Unknown]
  - Speech disorder [Not Recovered/Not Resolved]
  - Mouth swelling [Not Recovered/Not Resolved]
  - Urticaria [Not Recovered/Not Resolved]
  - Eye swelling [Not Recovered/Not Resolved]
  - Drug hypersensitivity [Unknown]
  - Dysphagia [Not Recovered/Not Resolved]
